FAERS Safety Report 9201810 (Version 1)
Quarter: 2013Q2

REPORT INFORMATION
  Report Type: Report from Study
  Country: DE (occurrence: DE)
  Receive Date: 20130401
  Receipt Date: 20130401
  Transmission Date: 20140414
  Serious: Yes (Hospitalization)
  Sender: FDA-Public Use
  Company Number: DE-ROCHE-1163427

PATIENT
  Sex: Female
  Weight: 107 kg

DRUGS (2)
  1. TOCILIZUMAB [Suspect]
     Indication: RHEUMATOID ARTHRITIS
     Route: 042
     Dates: start: 20101014, end: 20120529
  2. PREDNISOLON [Suspect]
     Indication: RHEUMATOID ARTHRITIS
     Route: 048
     Dates: start: 19970401

REACTIONS (5)
  - Sepsis [Recovered/Resolved]
  - Arthritis bacterial [Recovered/Resolved]
  - Renal failure acute [Recovering/Resolving]
  - Transaminases increased [Recovering/Resolving]
  - Fasciitis [Recovering/Resolving]
